FAERS Safety Report 18626623 (Version 1)
Quarter: 2020Q4

REPORT INFORMATION
  Report Type: Spontaneous
  Country: US (occurrence: US)
  Receive Date: 20201217
  Receipt Date: 20201217
  Transmission Date: 20210114
  Serious: No
  Sender: FDA-Public Use
  Company Number: US-009507513-2012USA005655

PATIENT
  Age: 20 Year
  Sex: Female

DRUGS (3)
  1. NEXPLANON [Suspect]
     Active Substance: ETONOGESTREL
     Indication: CONTRACEPTION
     Dosage: 1 ROD
     Dates: start: 20200925, end: 20200925
  2. JUNEL [Concomitant]
     Active Substance: ETHINYL ESTRADIOL\NORETHINDRONE ACETATE
     Indication: CONTRACEPTION
     Dosage: UNK
     Dates: start: 20200925
  3. NEXPLANON [Suspect]
     Active Substance: ETONOGESTREL
     Dosage: 1 ROD
     Route: 059
     Dates: start: 20200925

REACTIONS (3)
  - Product quality issue [Unknown]
  - Complication of device insertion [Recovered/Resolved]
  - No adverse event [Unknown]

NARRATIVE: CASE EVENT DATE: 20200925
